FAERS Safety Report 7948777-2 (Version None)
Quarter: 2011Q4

REPORT INFORMATION
  Report Type: 
  Country: None (occurrence: None)
  Receive Date: 20111130
  Receipt Date: 20111121
  Transmission Date: 20120403
  Serious: Yes (Hospitalization, Other)
  Sender: FDA-Public Use
  Company Number: FR-NOVOPROD-340227

PATIENT

DRUGS (7)
  1. LIRAGLUTIDE FLEXPEN [Suspect]
     Indication: TYPE 2 DIABETES MELLITUS
     Dosage: 0.6 MG, QD
     Route: 058
     Dates: start: 20110701, end: 20111023
  2. ATORVASTATIN CALCIUM [Concomitant]
     Dosage: 80 MG, UNK
  3. COVERSYL                           /00790702/ [Concomitant]
     Dosage: 10 MG, QD
     Route: 048
  4. NEBIVOLOL HCL [Concomitant]
     Dosage: 5 MG, QD
     Route: 048
  5. METFORMIN HCL [Concomitant]
     Dosage: 2 G, QD
     Route: 048
  6. NEXIUM [Concomitant]
     Dosage: 40 MG, QD
     Route: 048
     Dates: start: 20100301
  7. AMARYL [Concomitant]
     Dosage: 2 MG, QD
     Route: 048

REACTIONS (1)
  - PANCREATITIS ACUTE [None]
